FAERS Safety Report 13410506 (Version 4)
Quarter: 2023Q1

REPORT INFORMATION
  Report Type: Spontaneous
  Country: US (occurrence: US)
  Receive Date: 20170406
  Receipt Date: 20230228
  Transmission Date: 20230418
  Serious: Yes (Hospitalization)
  Sender: FDA-Public Use
  Company Number: US-JNJFOC-20170227367

PATIENT
  Age: 6 Year
  Sex: Male

DRUGS (12)
  1. RISPERDAL [Suspect]
     Active Substance: RISPERIDONE
     Indication: Attention deficit hyperactivity disorder
     Route: 048
     Dates: start: 19981015, end: 20000502
  2. RISPERDAL [Suspect]
     Active Substance: RISPERIDONE
     Indication: Oppositional defiant disorder
     Dosage: VARYING DOSE OF 1.0 MG, 2.0 MG AND 3.0 MG
     Route: 048
     Dates: start: 19981130, end: 20031020
  3. RISPERDAL [Suspect]
     Active Substance: RISPERIDONE
     Route: 048
     Dates: start: 20010107, end: 20030529
  4. RISPERDAL [Suspect]
     Active Substance: RISPERIDONE
     Route: 048
     Dates: start: 20031003
  5. RISPERDAL [Suspect]
     Active Substance: RISPERIDONE
     Route: 048
     Dates: start: 20070221, end: 20070315
  6. RISPERDAL [Suspect]
     Active Substance: RISPERIDONE
     Route: 048
  7. RISPERDAL [Suspect]
     Active Substance: RISPERIDONE
     Indication: Attention deficit hyperactivity disorder
     Dosage: IN VARYING DOSES OF 0.25 MG AND 0.5 MG TWICE DAILY OR 0.5 MG IN THE MORNING AND 1 MG AT BEDTIME
     Route: 048
     Dates: start: 199809, end: 1998
  8. RISPERDAL [Suspect]
     Active Substance: RISPERIDONE
     Indication: Oppositional defiant disorder
     Route: 048
     Dates: start: 19981015, end: 19981117
  9. RISPERDAL [Suspect]
     Active Substance: RISPERIDONE
     Indication: Depression
     Route: 048
  10. INVEGA [Suspect]
     Active Substance: PALIPERIDONE
     Indication: Attention deficit hyperactivity disorder
     Route: 048
     Dates: start: 20070221
  11. INVEGA [Suspect]
     Active Substance: PALIPERIDONE
     Indication: Oppositional defiant disorder
     Route: 048
     Dates: start: 20070312, end: 20070315
  12. INVEGA [Suspect]
     Active Substance: PALIPERIDONE
     Route: 048

REACTIONS (9)
  - Chest pain [Unknown]
  - Dyspnoea [Unknown]
  - Tachycardia [Unknown]
  - Seizure [Unknown]
  - Emotional distress [Unknown]
  - Gynaecomastia [Unknown]
  - Extrapyramidal disorder [Unknown]
  - Off label use [Unknown]
  - Product use in unapproved indication [Unknown]

NARRATIVE: CASE EVENT DATE: 19980901
